FAERS Safety Report 19310780 (Version 1)
Quarter: 2021Q2

REPORT INFORMATION
  Report Type: Spontaneous
  Country: TR (occurrence: TR)
  Receive Date: 20210526
  Receipt Date: 20210526
  Transmission Date: 20210717
  Serious: Yes (Other)
  Sender: FDA-Public Use
  Company Number: NVSC2019TR095547

PATIENT
  Age: 38 Year
  Sex: Female

DRUGS (1)
  1. TRILEPTAL [Suspect]
     Active Substance: OXCARBAZEPINE
     Indication: EPILEPSY
     Dosage: 300 MG AND 600 MG? MORNING / EVENING
     Route: 065

REACTIONS (5)
  - Epilepsy [Unknown]
  - Nervousness [Unknown]
  - Enuresis [Unknown]
  - Feeling abnormal [Unknown]
  - Product supply issue [Unknown]
